FAERS Safety Report 5320977-X (Version None)
Quarter: 2007Q2

REPORT INFORMATION
  Report Type: 
  Country: None (occurrence: None)
  Receive Date: 20070510
  Receipt Date: 20070503
  Transmission Date: 20071010
  Serious: Yes (Other)
  Sender: FDA-Public Use
  Company Number: PHNR2007AU01024

PATIENT
  Age: 51 Year
  Sex: Female

DRUGS (10)
  1. TAXOL [Concomitant]
     Indication: BREAST CANCER
     Dosage: WEEKLY
     Dates: start: 20060710
  2. OXYCONTIN [Concomitant]
  3. OXYNORM [Concomitant]
  4. STEROIDS NOS [Concomitant]
     Dosage: IV AND ORAL
  5. ZOFRAN [Concomitant]
  6. ZOMETA [Suspect]
     Indication: BREAST CANCER
     Dosage: 4 MG, MONTHLY
     Dates: start: 20060101
  7. DEXAMETHASONE 0.5MG TAB [Concomitant]
     Dosage: POST CHEMOTHERAPY
  8. AMOXICILLIN [Concomitant]
     Indication: TOOTH INFECTION
  9. PANADOL [Concomitant]
  10. CHEMOTHERAPEUTICS NOS [Concomitant]

REACTIONS (11)
  - DENTAL OPERATION [None]
  - DYSAESTHESIA [None]
  - GINGIVAL INFECTION [None]
  - GINGIVAL SWELLING [None]
  - HYPOAESTHESIA [None]
  - IMPAIRED HEALING [None]
  - JAW DISORDER [None]
  - OSTEONECROSIS [None]
  - PAIN IN JAW [None]
  - PURULENCE [None]
  - TOOTH EXTRACTION [None]
